FAERS Safety Report 7421740-6 (Version None)
Quarter: 2011Q2

REPORT INFORMATION
  Report Type: 
  Country: None (occurrence: None)
  Receive Date: 20110418
  Receipt Date: 20110408
  Transmission Date: 20111010
  Serious: Yes (Other)
  Sender: FDA-Public Use
  Company Number: US-ASTRAZENECA-2011SE19983

PATIENT
  Age: 56 Year
  Sex: Female
  Weight: 74.8 kg

DRUGS (11)
  1. SEROQUEL [Suspect]
     Route: 048
     Dates: end: 20110301
  2. SEROQUEL [Suspect]
     Route: 048
     Dates: start: 20110407
  3. NEURONTIN [Concomitant]
  4. METFORMIN [Concomitant]
  5. SEROQUEL [Suspect]
     Route: 048
     Dates: start: 20110301, end: 20110407
  6. SEROQUEL [Suspect]
     Route: 048
     Dates: start: 20110301, end: 20110407
  7. SEROQUEL [Suspect]
     Indication: ANXIETY
     Route: 048
     Dates: end: 20101101
  8. SEROQUEL [Suspect]
     Route: 048
     Dates: end: 20110301
  9. AMBIEN [Concomitant]
     Dosage: AS REQUIRED
  10. SEROQUEL [Suspect]
     Indication: BIPOLAR DISORDER
     Route: 048
     Dates: end: 20101101
  11. SEROQUEL [Suspect]
     Route: 048
     Dates: start: 20110407

REACTIONS (10)
  - NERVOUSNESS [None]
  - ANXIETY [None]
  - TENSION [None]
  - DRUG DOSE OMISSION [None]
  - DIABETES MELLITUS [None]
  - MALAISE [None]
  - NAUSEA [None]
  - DRUG INEFFECTIVE [None]
  - INSOMNIA [None]
  - DIABETIC NEUROPATHY [None]
